FAERS Safety Report 15769231 (Version 1)
Quarter: 2018Q4

REPORT INFORMATION
  Report Type: Spontaneous
  Country: US (occurrence: US)
  Receive Date: 20181228
  Receipt Date: 20181228
  Transmission Date: 20190205
  Serious: Yes (Hospitalization)
  Sender: FDA-Public Use
  Company Number: US-IBIGEN-2018.05478

PATIENT
  Age: 22 Year
  Sex: Male

DRUGS (2)
  1. AMPICILLIN SULBACTAM [Suspect]
     Active Substance: AMPICILLIN SODIUM\SULBACTAM SODIUM
     Route: 042
  2. METRONIDAZOLE. [Suspect]
     Active Substance: METRONIDAZOLE

REACTIONS (3)
  - Lemierre syndrome [Recovered/Resolved]
  - Drug ineffective [Recovered/Resolved]
  - Condition aggravated [Recovered/Resolved]
